FAERS Safety Report 19641986 (Version 1)
Quarter: 2021Q3

REPORT INFORMATION
  Report Type: Spontaneous
  Country: FR (occurrence: FR)
  Receive Date: 20210731
  Receipt Date: 20210731
  Transmission Date: 20211014
  Serious: Yes (Hospitalization)
  Sender: FDA-Public Use
  Company Number: FR-ACCORD-233741

PATIENT
  Age: 64 Year
  Sex: Female
  Weight: 128 kg

DRUGS (3)
  1. CARBOPLATIN ACCORD [Suspect]
     Active Substance: CARBOPLATIN
     Indication: GENITOURINARY TRACT NEOPLASM
     Dosage: 10 MG / ML, SOLUTION FOR INFUSION
     Route: 041
     Dates: start: 20210428, end: 20210428
  2. METHYLPREDNISOLONE MYLAN [Concomitant]
     Active Substance: METHYLPREDNISOLONE
     Indication: CHEMOTHERAPY SIDE EFFECT PROPHYLAXIS
     Route: 042
     Dates: start: 20210428, end: 20210428
  3. ONDANSETRON. [Concomitant]
     Active Substance: ONDANSETRON
     Indication: CHEMOTHERAPY SIDE EFFECT PROPHYLAXIS
     Dosage: 2 MG / ML, SOLUTION FOR INJECTION (I.V.)
     Route: 042
     Dates: start: 20210428, end: 20210428

REACTIONS (1)
  - Infusion related reaction [Recovered/Resolved]

NARRATIVE: CASE EVENT DATE: 20210428
